FAERS Safety Report 9198321 (Version 1)
Quarter: 2013Q1

REPORT INFORMATION
  Report Type: Spontaneous
  Country: GB (occurrence: GB)
  Receive Date: 20130329
  Receipt Date: 20130329
  Transmission Date: 20140127
  Serious: Yes (Life-Threatening, Hospitalization)
  Sender: FDA-Public Use
  Company Number: GB-ABBOTT-13X-167-1069192-00

PATIENT
  Age: 91 Year
  Sex: Male
  Weight: 60 kg

DRUGS (7)
  1. CLARITHROMYCIN [Suspect]
     Indication: PNEUMONIA
     Dosage: CUMULATIVE DOSE TO 1ST REACTION: 4000MG
     Route: 048
     Dates: start: 20130208, end: 20130212
  2. AMITRIPTYLINE [Concomitant]
     Indication: PRODUCT USED FOR UNKNOWN INDICATION
  3. FERROUS FUMARATE [Concomitant]
     Indication: PRODUCT USED FOR UNKNOWN INDICATION
  4. SALBUTAMOL [Concomitant]
     Indication: PRODUCT USED FOR UNKNOWN INDICATION
  5. TIOTROPIUM [Concomitant]
     Indication: PRODUCT USED FOR UNKNOWN INDICATION
  6. TAMSULOSIN [Concomitant]
     Indication: PRODUCT USED FOR UNKNOWN INDICATION
  7. OMEPRAZOLE [Concomitant]
     Indication: PRODUCT USED FOR UNKNOWN INDICATION

REACTIONS (2)
  - Delusional disorder, persecutory type [Recovered/Resolved]
  - Suicide attempt [Unknown]
